FAERS Safety Report 4613370-6 (Version None)
Quarter: 2005Q1

REPORT INFORMATION
  Report Type: 
  Country: None (occurrence: None)
  Receive Date: 20050316
  Receipt Date: 20050228
  Transmission Date: 20050727
  Serious: Yes (Life-Threatening, Hospitalization, Disabling)
  Sender: FDA-Public Use
  Company Number: S04-GER-08030-01

PATIENT
  Age: 48 Year
  Sex: Male

DRUGS (1)
  1. CIPRALEX (ESCITALOPRAM) [Suspect]
     Indication: DEPRESSION
     Dosage: 10 MG QD PO
     Route: 048
     Dates: start: 20040812, end: 20041108

REACTIONS (26)
  - AFFECT LABILITY [None]
  - BLOOD LACTATE DEHYDROGENASE INCREASED [None]
  - BLOOD PARATHYROID HORMONE INCREASED [None]
  - BLOOD PHOSPHORUS INCREASED [None]
  - C-REACTIVE PROTEIN INCREASED [None]
  - CATHETER SEPSIS [None]
  - DIALYSIS [None]
  - DISEASE PROGRESSION [None]
  - ENTEROCOCCAL SEPSIS [None]
  - ESCHERICHIA URINARY TRACT INFECTION [None]
  - FALL [None]
  - GLOMERULONEPHRITIS [None]
  - GLOMERULONEPHRITIS PROLIFERATIVE [None]
  - HENOCH-SCHONLEIN PURPURA [None]
  - HYPERTENSION [None]
  - LYMPHOCYTE PERCENTAGE DECREASED [None]
  - MEAN CELL HAEMOGLOBIN CONCENTRATION INCREASED [None]
  - MENTAL DISORDER DUE TO A GENERAL MEDICAL CONDITION [None]
  - MONOCYTE PERCENTAGE DECREASED [None]
  - NEUTROPHIL PERCENTAGE INCREASED [None]
  - NORMOCHROMIC NORMOCYTIC ANAEMIA [None]
  - PULMONARY OEDEMA [None]
  - RENAL FAILURE [None]
  - THROMBOCYTOPENIA [None]
  - VASCULITIS [None]
  - WHITE BLOOD CELL COUNT INCREASED [None]
